FAERS Safety Report 16251030 (Version 9)
Quarter: 2022Q3

REPORT INFORMATION
  Report Type: Spontaneous
  Country: US (occurrence: US)
  Receive Date: 20190429
  Receipt Date: 20220909
  Transmission Date: 20221027
  Serious: Yes (Other)
  Sender: FDA-Public Use
  Company Number: US-PFIZER INC-2019181813

PATIENT
  Age: 72 Year
  Sex: Female
  Weight: 59 kg

DRUGS (3)
  1. CELEBREX [Suspect]
     Active Substance: CELECOXIB
     Indication: Inflammation
     Dosage: 200 MG, 2X/DAY
  2. CELEBREX [Suspect]
     Active Substance: CELECOXIB
     Indication: Arthritis
     Dosage: 200 MG, 1X/DAY (FOR 30 DAYS)
     Route: 048
  3. CELEBREX [Suspect]
     Active Substance: CELECOXIB
     Indication: Joint prosthesis user

REACTIONS (6)
  - Knee arthroplasty [Unknown]
  - Product dose omission issue [Unknown]
  - Gastric disorder [Unknown]
  - Pain [Unknown]
  - Mobility decreased [Unknown]
  - Inflammation [Unknown]
